FAERS Safety Report 9600690 (Version 1)
Quarter: 2013Q4

REPORT INFORMATION
  Report Type: Spontaneous
  Country: US (occurrence: US)
  Receive Date: 20131004
  Receipt Date: 20131004
  Transmission Date: 20140711
  Serious: No
  Sender: FDA-Public Use
  Company Number: US-AMGEN-USASP2013036719

PATIENT
  Age: 37 Year
  Sex: Female
  Weight: 72.56 kg

DRUGS (7)
  1. ENBREL [Suspect]
     Indication: PRODUCT USED FOR UNKNOWN INDICATION
     Dosage: 50 MG, QWK
     Route: 058
  2. PROZAC [Concomitant]
     Dosage: 40 MG, UNK
  3. MOBIC [Concomitant]
     Dosage: 15 MG, UNK
  4. PREDNISONE [Concomitant]
     Dosage: 10 MG, UNK
  5. TRAMADOL HCL [Concomitant]
     Dosage: 300 MG, UNK
  6. VICODIN [Concomitant]
     Dosage: 7.5-750 UNK
  7. PLAQUENIL                          /00072602/ [Concomitant]
     Dosage: 200 MG, UNK

REACTIONS (1)
  - Drug ineffective [Unknown]
